FAERS Safety Report 14684698 (Version 1)
Quarter: 2018Q1

REPORT INFORMATION
  Report Type: Spontaneous
  Country: US (occurrence: US)
  Receive Date: 20180327
  Receipt Date: 20180327
  Transmission Date: 20180509
  Serious: Yes (Disabling, Other)
  Sender: FDA-Public Use
  Company Number: None

PATIENT
  Age: 71 Year
  Sex: Female
  Weight: 79.38 kg

DRUGS (1)
  1. DIFLUCAN [Suspect]
     Active Substance: FLUCONAZOLE

REACTIONS (7)
  - Pyrexia [None]
  - Paraplegia [None]
  - Dysstasia [None]
  - Unevaluable event [None]
  - Gait disturbance [None]
  - Influenza [None]
  - Thrombosis [None]

NARRATIVE: CASE EVENT DATE: 20151104
